FAERS Safety Report 5255383-X (Version None)
Quarter: 2007Q1

REPORT INFORMATION
  Report Type: 
  Country: None (occurrence: None)
  Receive Date: 20070305
  Receipt Date: 20070221
  Transmission Date: 20070707
  Serious: Yes (Death, Life-Threatening, Other)
  Sender: FDA-Public Use
  Company Number: HQWYE934231OCT06

PATIENT
  Sex: Male
  Weight: 54 kg

DRUGS (7)
  1. MYLOTARG [Suspect]
     Indication: ACUTE MYELOID LEUKAEMIA RECURRENT
     Route: 041
     Dates: start: 20060310, end: 20060310
  2. FIRSTCIN [Concomitant]
     Indication: PROPHYLAXIS
     Route: 041
     Dates: start: 20060309, end: 20060313
  3. DIOVAN [Concomitant]
     Route: 048
     Dates: start: 20041208, end: 20060316
  4. AMARYL [Concomitant]
     Route: 048
     Dates: start: 20020224, end: 20060316
  5. MELBIN [Concomitant]
     Route: 048
     Dates: start: 20060224, end: 20060316
  6. ORGARAN [Concomitant]
     Route: 041
     Dates: start: 20060307, end: 20060316
  7. FUNGUARD [Concomitant]
     Indication: PROPHYLAXIS
     Route: 041
     Dates: start: 20060310, end: 20060315

REACTIONS (6)
  - CONDITION AGGRAVATED [None]
  - DISSEMINATED INTRAVASCULAR COAGULATION [None]
  - HYPOXIA [None]
  - INFECTION [None]
  - INTERSTITIAL LUNG DISEASE [None]
  - TUMOUR LYSIS SYNDROME [None]
